FAERS Safety Report 8337363-0 (Version None)
Quarter: 2012Q2

REPORT INFORMATION
  Report Type: 
  Country: None (occurrence: None)
  Receive Date: 20120502
  Receipt Date: 20120417
  Transmission Date: 20120825
  Serious: Yes (Hospitalization)
  Sender: FDA-Public Use
  Company Number: US-JNJFOC-20100401581

PATIENT
  Age: 87 Year
  Sex: Female
  Weight: 51.3 kg

DRUGS (12)
  1. PRILOSEC [Concomitant]
  2. VORICONAZOLE [Concomitant]
  3. NEUTRA PHOS (NEUTRA-PHOS) [Concomitant]
  4. REGLAN [Concomitant]
  5. DECITABINE [Suspect]
     Indication: ACUTE MYELOID LEUKAEMIA
     Dosage: 20 MG/M2, INTRAVENOUS
     Route: 042
     Dates: start: 20100329, end: 20100402
  6. DECITABINE [Suspect]
     Indication: ACUTE MYELOID LEUKAEMIA
     Dosage: 20 MG/M2, INTRAVENOUS
     Route: 042
     Dates: start: 20100227, end: 20100303
  7. POTASSIUM CHLORIDE [Concomitant]
  8. GRANULOCYTE COLONY STIMULATING RACTOR (GRANULOCYTE COLONY STIMALATING [Suspect]
     Indication: ACUTE MYELOID LEUKAEMIA
     Dosage: 300 MG, SUBCUTANEOUS
     Route: 058
     Dates: start: 20100227, end: 20100303
  9. GRANULOCYTE COLONY STIMULATING RACTOR (GRANULOCYTE COLONY STIMALATING [Suspect]
     Indication: ACUTE MYELOID LEUKAEMIA
     Dosage: 300 MG, SUBCUTANEOUS
     Route: 058
     Dates: start: 20100329, end: 20100402
  10. PROPRANOLOL [Concomitant]
  11. CYTARABINE [Suspect]
     Indication: ACUTE MYELOID LEUKAEMIA
     Dosage: 20 MG/M2, SUBCUTANEOUS
     Route: 058
     Dates: start: 20100227, end: 20100303
  12. CYTARABINE [Suspect]
     Indication: ACUTE MYELOID LEUKAEMIA
     Dosage: 20 MG/M2, SUBCUTANEOUS
     Route: 058
     Dates: start: 20100329, end: 20100402

REACTIONS (11)
  - FLUID OVERLOAD [None]
  - PATHOGEN RESISTANCE [None]
  - HYPOXIA [None]
  - URINARY TRACT INFECTION [None]
  - ANAEMIA [None]
  - FUNGAL INFECTION [None]
  - THROMBOCYTOPENIA [None]
  - CONFUSIONAL STATE [None]
  - CARDIAC FAILURE CONGESTIVE [None]
  - PLEURAL EFFUSION [None]
  - SYNCOPE [None]
